FAERS Safety Report 5398200-X (Version None)
Quarter: 2007Q3

REPORT INFORMATION
  Report Type: 
  Country: None (occurrence: None)
  Receive Date: 20070726
  Receipt Date: 20070716
  Transmission Date: 20080115
  Serious: Yes (Other)
  Sender: FDA-Public Use
  Company Number: US-PFIZER INC-2007016804

PATIENT
  Sex: Male
  Weight: 98.4 kg

DRUGS (13)
  1. EXUBERA [Suspect]
     Route: 055
  2. LEVAQUIN [Concomitant]
  3. GLUCOTROL XL [Concomitant]
     Dosage: DAILY DOSE:10MG
  4. GLUCOPHAGE [Concomitant]
  5. AVANDIA [Concomitant]
  6. BYETTA [Concomitant]
  7. VIAGRA [Concomitant]
  8. LEVITRA [Concomitant]
     Dosage: DAILY DOSE:20MG
  9. CIALIS [Concomitant]
     Dosage: DAILY DOSE:20MG
  10. AVANDAMET [Concomitant]
  11. ACCURETIC [Concomitant]
  12. HUMALOG [Concomitant]
  13. GLIPIZIDE [Concomitant]

REACTIONS (5)
  - BENIGN NEOPLASM OF THYROID GLAND [None]
  - BLOOD GLUCOSE INCREASED [None]
  - CHEST DISCOMFORT [None]
  - HAEMOPTYSIS [None]
  - PNEUMONIA PRIMARY ATYPICAL [None]
